FAERS Safety Report 11741118 (Version 1)
Quarter: 2015Q4

REPORT INFORMATION
  Report Type: Spontaneous
  Country: IT (occurrence: IT)
  Receive Date: 20151116
  Receipt Date: 20151116
  Transmission Date: 20160304
  Serious: Yes (Other)
  Sender: FDA-Public Use
  Company Number: IT-HOSPIRA-3075391

PATIENT
  Age: 71 Year
  Sex: Male
  Weight: 102 kg

DRUGS (4)
  1. ASPIRINA [Concomitant]
     Active Substance: ASPIRIN
     Indication: PROPHYLAXIS
  2. LINEZOLID. [Concomitant]
     Active Substance: LINEZOLID
     Indication: SEPSIS
  3. CLEXANE [Suspect]
     Active Substance: ENOXAPARIN SODIUM
     Indication: THROMBOSIS PROPHYLAXIS
     Dosage: WEEKLY
     Route: 042
     Dates: start: 20150801, end: 20150805
  4. HEPARIN SODIUM. [Suspect]
     Active Substance: HEPARIN SODIUM
     Indication: THROMBOSIS PROPHYLAXIS
     Dosage: WEEKLY
     Route: 042
     Dates: start: 20150806, end: 20150822

REACTIONS (2)
  - Drug interaction [Unknown]
  - Anti-platelet antibody [Recovered/Resolved with Sequelae]

NARRATIVE: CASE EVENT DATE: 20150822
